FAERS Safety Report 20073399 (Version 1)
Quarter: 2021Q4

REPORT INFORMATION
  Report Type: Report from Study
  Country: US (occurrence: US)
  Receive Date: 20211116
  Receipt Date: 20211116
  Transmission Date: 20220303
  Serious: No
  Sender: FDA-Public Use
  Company Number: US-NOVARTISTESTPH-NVSC2021US163736

PATIENT
  Sex: Female

DRUGS (5)
  1. JAKAFI [Suspect]
     Active Substance: RUXOLITINIB
     Indication: Polycythaemia vera
     Dosage: 10 MG, BID (10 MILLIGRAM, BID)
     Route: 048
     Dates: start: 20210422
  2. JAKAFI [Suspect]
     Active Substance: RUXOLITINIB
     Dosage: 10 MG, BID
     Route: 048
  3. JAKAFI [Suspect]
     Active Substance: RUXOLITINIB
     Dosage: 15 MG, BID
     Route: 048
  4. ASPIRIN [Suspect]
     Active Substance: ASPIRIN
     Indication: Product used for unknown indication
     Dosage: 325 MG
     Route: 065
  5. HYDROXYUREA [Concomitant]
     Active Substance: HYDROXYUREA
     Indication: Product used for unknown indication
     Dosage: 1000 MILLIGRAM (FOR 2 WEEKS)
     Route: 065

REACTIONS (13)
  - Fatigue [Unknown]
  - Asthenia [Unknown]
  - Intentional product use issue [Unknown]
  - White blood cell count increased [Unknown]
  - Platelet count increased [Unknown]
  - Myalgia [Unknown]
  - Pallor [Unknown]
  - Haematocrit abnormal [Unknown]
  - COVID-19 [Unknown]
  - Product dose omission in error [Unknown]
  - Contusion [Unknown]
  - Nausea [Unknown]
  - Headache [Unknown]

NARRATIVE: CASE EVENT DATE: 20210901
